FAERS Safety Report 5754554-3 (Version None)
Quarter: 2008Q2

REPORT INFORMATION
  Report Type: 
  Country: None (occurrence: None)
  Receive Date: 20080530
  Receipt Date: 20080520
  Transmission Date: 20081010
  Serious: Yes (Other)
  Sender: FDA-Public Use
  Company Number: JP-PFIZER INC-2008043328

PATIENT
  Age: 19 Year
  Sex: Male

DRUGS (3)
  1. GABAPEN [Suspect]
     Dosage: DAILY DOSE:1200MG
     Route: 048
  2. DEPAKENE [Concomitant]
     Dosage: DAILY DOSE:1000MG
     Route: 048
  3. EXCEGRAN [Concomitant]
     Dosage: DAILY DOSE:200MG
     Route: 048

REACTIONS (2)
  - DRUG LEVEL DECREASED [None]
  - GRAND MAL CONVULSION [None]
